FAERS Safety Report 25180267 (Version 2)
Quarter: 2025Q2

REPORT INFORMATION
  Report Type: Spontaneous
  Country: FR (occurrence: FR)
  Receive Date: 20250409
  Receipt Date: 20250424
  Transmission Date: 20250717
  Serious: Yes (Other)
  Sender: JOHNSON AND JOHNSON
  Company Number: FR-JNJFOC-20250262332

PATIENT
  Sex: Male
  Weight: 81 kg

DRUGS (5)
  1. RYBREVANT [Suspect]
     Active Substance: AMIVANTAMAB-VMJW
     Indication: Non-small cell lung cancer metastatic
  2. RYBREVANT [Suspect]
     Active Substance: AMIVANTAMAB-VMJW
     Dates: end: 20250226
  3. RYBREVANT [Suspect]
     Active Substance: AMIVANTAMAB-VMJW
     Dates: start: 20250310
  4. CARBOPLATIN [Concomitant]
     Active Substance: CARBOPLATIN
     Dates: start: 20250310
  5. PEMETREXED [Concomitant]
     Active Substance: PEMETREXED
     Dates: start: 20250310

REACTIONS (3)
  - Neutropenic colitis [Unknown]
  - Off label use [Unknown]
  - Wrong patient [Unknown]
